FAERS Safety Report 4312061-9 (Version None)
Quarter: 2004Q1

REPORT INFORMATION
  Report Type: 
  Country: None (occurrence: None)
  Receive Date: 20040303
  Receipt Date: 19980203
  Transmission Date: 20041129
  Serious: Yes (Death, Other)
  Sender: FDA-Public Use
  Company Number: GB-JNJFOC-20031104497

PATIENT
  Age: 77 Year
  Sex: Male

DRUGS (6)
  1. REMICADE [Suspect]
     Indication: RHEUMATOID ARTHRITIS
     Dosage: INTRAVENOUS
     Route: 042
     Dates: start: 19930301, end: 19930301
  2. METHOTREXATE [Concomitant]
  3. PREDNISOLONE [Concomitant]
  4. SULFASALAZINE [Concomitant]
  5. FRUMIL (FRUMIL) [Concomitant]
  6. RANITIDINE [Concomitant]

REACTIONS (11)
  - ABDOMINAL MASS [None]
  - ABDOMINAL PAIN UPPER [None]
  - ANOREXIA [None]
  - GASTRIC CANCER [None]
  - HAEMOGLOBIN ABNORMAL [None]
  - HYPOALBUMINAEMIA [None]
  - METASTASES TO LYMPH NODES [None]
  - OEDEMA [None]
  - PURPURA [None]
  - SKIN ATROPHY [None]
  - WEIGHT DECREASED [None]
